FAERS Safety Report 22222195 (Version 1)
Quarter: 2023Q2

REPORT INFORMATION
  Report Type: Report from Study
  Country: US (occurrence: US)
  Receive Date: 20230418
  Receipt Date: 20230418
  Transmission Date: 20230722
  Serious: Yes (Other)
  Sender: FDA-Public Use
  Company Number: US-BTGSP-US-BTGSP-23-0079

PATIENT
  Age: 48 Year
  Sex: Male

DRUGS (6)
  1. CROFAB [Suspect]
     Active Substance: CROTALIDAE POLYVALENT IMMUNE FAB (OVINE)
     Indication: Snake bite
     Dosage: 6 VIALS
     Route: 065
  2. ANAVIP [Suspect]
     Active Substance: PIT VIPER (CROTALINAE) IMMUNE GLOBULIN ANTIVENIN (EQUINE)
     Indication: Snake bite
     Dosage: 4 VIALS
     Route: 065
  3. ANAVIP [Suspect]
     Active Substance: PIT VIPER (CROTALINAE) IMMUNE GLOBULIN ANTIVENIN (EQUINE)
     Dosage: 4 VIALS
     Route: 065
  4. ANAVIP [Suspect]
     Active Substance: PIT VIPER (CROTALINAE) IMMUNE GLOBULIN ANTIVENIN (EQUINE)
     Dosage: 10 VIALS
     Route: 065
  5. ANAVIP [Suspect]
     Active Substance: PIT VIPER (CROTALINAE) IMMUNE GLOBULIN ANTIVENIN (EQUINE)
     Dosage: 4 VIALS
     Route: 065
  6. ANAVIP [Suspect]
     Active Substance: PIT VIPER (CROTALINAE) IMMUNE GLOBULIN ANTIVENIN (EQUINE)
     Dosage: 4 VIALS
     Route: 065

REACTIONS (8)
  - Mobility decreased [Unknown]
  - Pain [Unknown]
  - Platelet count decreased [Unknown]
  - Swelling [Unknown]
  - Condition aggravated [Unknown]
  - Therapy change [Unknown]
  - Off label use [Unknown]
  - Underdose [Unknown]
